FAERS Safety Report 8773645 (Version 1)
Quarter: 2012Q4

REPORT INFORMATION
  Report Type: 
  Country: KR (occurrence: KR)
  Receive Date: 20120907
  Receipt Date: 20120907
  Transmission Date: 20130627
  Serious: Yes (Other)
  Sender: FDA-Public Use
  Company Number: PHHY2012KR075728

PATIENT
  Age: 33 Year
  Sex: Female

DRUGS (1)
  1. CICLOSPORIN [Suspect]
     Indication: GRAFT VERSUS HOST DISEASE

REACTIONS (11)
  - Wernicke^s encephalopathy [Recovered/Resolved with Sequelae]
  - Asthenia [Unknown]
  - Hypophagia [Unknown]
  - Vertigo [Recovering/Resolving]
  - Oscillopsia [Recovering/Resolving]
  - Ataxia [Recovering/Resolving]
  - Central nervous system lesion [Recovering/Resolving]
  - Nystagmus [Recovering/Resolving]
  - Gaze palsy [Recovering/Resolving]
  - Anaemia [Unknown]
  - Thrombocytopenia [Unknown]
